FAERS Safety Report 9995076 (Version 2)
Quarter: 2014Q2

REPORT INFORMATION
  Report Type: Report from Study
  Country: US (occurrence: US)
  Receive Date: 20140311
  Receipt Date: 20140430
  Transmission Date: 20141212
  Serious: Yes (Hospitalization)
  Sender: FDA-Public Use
  Company Number: US-JNJFOC-20140303684

PATIENT
  Age: 13 Year
  Sex: Male
  Weight: 51.3 kg

DRUGS (2)
  1. REMICADE [Suspect]
     Indication: INFLAMMATORY BOWEL DISEASE
     Route: 042
     Dates: start: 20121217
  2. LEVOCETIRIZINE [Concomitant]
     Route: 065

REACTIONS (1)
  - Small intestinal bacterial overgrowth [Recovered/Resolved]
